FAERS Safety Report 21748800 (Version 2)
Quarter: 2025Q1

REPORT INFORMATION
  Report Type: Spontaneous
  Country: US (occurrence: US)
  Receive Date: 20221219
  Receipt Date: 20250205
  Transmission Date: 20250408
  Serious: No
  Sender: PFIZER
  Company Number: US-PFIZER INC-PV202200125751

PATIENT
  Age: 66 Year
  Sex: Female

DRUGS (1)
  1. IBRANCE [Suspect]
     Active Substance: PALBOCICLIB
     Dosage: 125 MG, 1X/DAY (1 TABLET ONCE DAILY FOR 21 DAYS ON THEN 7 DAYS OFF, TAKE WITH OR WITHOUT FOOD)
     Route: 048

REACTIONS (1)
  - Fatigue [Unknown]
